FAERS Safety Report 7477187-X (Version None)
Quarter: 2011Q2

REPORT INFORMATION
  Report Type: 
  Country: None (occurrence: None)
  Receive Date: 20110512
  Receipt Date: 20110301
  Transmission Date: 20111010
  Serious: No
  Sender: FDA-Public Use
  Company Number: US-NOVEN-11US001903

PATIENT
  Sex: Female

DRUGS (1)
  1. DAYTRANA [Suspect]
     Indication: PRODUCT USED FOR UNKNOWN INDICATION
     Dosage: 20 MG, QD
     Route: 062
     Dates: start: 20110227

REACTIONS (6)
  - PALPITATIONS [None]
  - DRUG ADMINISTRATION ERROR [None]
  - EUPHORIC MOOD [None]
  - PRODUCT QUALITY ISSUE [None]
  - OFF LABEL USE [None]
  - APPLICATION SITE ULCER [None]
